FAERS Safety Report 5393688-2 (Version None)
Quarter: 2007Q3

REPORT INFORMATION
  Report Type: 
  Country: None (occurrence: None)
  Receive Date: 20070723
  Receipt Date: 20070712
  Transmission Date: 20080115
  Serious: Yes (Life-Threatening, Hospitalization, Other)
  Sender: FDA-Public Use
  Company Number: CA-ELI_LILLY_AND_COMPANY-CA200706002889

PATIENT
  Age: 24 Year
  Sex: Female

DRUGS (6)
  1. ZYPREXA [Suspect]
     Dosage: 10 MG, DAILY (1/D)
     Route: 048
  2. WELLBUTRIN [Concomitant]
  3. TYLENOL COLD [Concomitant]
  4. IBUPROFEN [Concomitant]
  5. SEROQUEL [Concomitant]
  6. CLONAZEPAM [Concomitant]

REACTIONS (7)
  - ACIDOSIS [None]
  - DEPRESSED LEVEL OF CONSCIOUSNESS [None]
  - GRAND MAL CONVULSION [None]
  - HYPERCAPNIA [None]
  - HYPOVENTILATION [None]
  - INTENTIONAL OVERDOSE [None]
  - SUICIDE ATTEMPT [None]
